FAERS Safety Report 19820907 (Version 1)
Quarter: 2021Q3

REPORT INFORMATION
  Report Type: Spontaneous
  Country: US (occurrence: US)
  Receive Date: 20210913
  Receipt Date: 20210913
  Transmission Date: 20211014
  Serious: Yes (Other)
  Sender: FDA-Public Use
  Company Number: US-APOTEX-2021AP042469

PATIENT
  Age: 52 Year
  Sex: Female

DRUGS (3)
  1. MIDODRINE [Suspect]
     Active Substance: MIDODRINE
     Indication: SYNCOPE
     Dosage: UNK
     Route: 065
  2. TIZANIDINE. [Suspect]
     Active Substance: TIZANIDINE
     Indication: MUSCLE SPASMS
     Dosage: 4 MILLIGRAM, BID
     Route: 065
  3. TIZANIDINE. [Suspect]
     Active Substance: TIZANIDINE
     Dosage: 8 MILLIGRAM, QD (AT NIGHT)
     Route: 065

REACTIONS (6)
  - Syncope [Recovered/Resolved]
  - Somnolence [Unknown]
  - Hypertension [Unknown]
  - Hypotension [Unknown]
  - Drug ineffective [Unknown]
  - Inappropriate schedule of product administration [Unknown]
